FAERS Safety Report 11072516 (Version 1)
Quarter: 2015Q2

REPORT INFORMATION
  Report Type: Spontaneous
  Country: IT (occurrence: IT)
  Receive Date: 20150428
  Receipt Date: 20150428
  Transmission Date: 20150821
  Serious: Yes (Life-Threatening, Hospitalization)
  Sender: FDA-Public Use
  Company Number: IT-TEVA-557744ACC

PATIENT
  Age: 78 Year
  Sex: Male
  Weight: 78 kg

DRUGS (3)
  1. BICALUTAMIDE TEVA - 50 MG COMPRESSE RIVESTITE CON FILM - TEVA ITALIA S [Suspect]
     Active Substance: BICALUTAMIDE
     Indication: PROSTATE CANCER
     Dosage: 50 MILLIGRAM DAILY;
     Route: 048
     Dates: start: 20150320, end: 20150325
  2. JEVTANA [Concomitant]
     Active Substance: CABAZITAXEL
     Indication: PROSTATE CANCER
     Dosage: 45 MG; CONCENTRATE FOR SOLUTION FOR INFUSION
     Route: 042
     Dates: start: 20141124, end: 20150302
  3. XGEVA - 120 MG SOLUZIONE INIETTABILE [Concomitant]
     Indication: METASTASES TO BONE
     Dosage: 120 MG
     Route: 058
     Dates: start: 20141015, end: 20150310

REACTIONS (2)
  - Ileus paralytic [Recovered/Resolved]
  - Abdominal pain [Recovered/Resolved]

NARRATIVE: CASE EVENT DATE: 20150325
